FAERS Safety Report 6476100-1 (Version None)
Quarter: 2009Q4

REPORT INFORMATION
  Report Type: 
  Country: None (occurrence: None)
  Receive Date: 20091204
  Receipt Date: 20091125
  Transmission Date: 20100525
  Serious: Yes (Other)
  Sender: FDA-Public Use
  Company Number: US-JNJCH-2009030930

PATIENT
  Age: 1 Year
  Sex: Female
  Weight: 10.9 kg

DRUGS (1)
  1. DESITIN CREAMY DIAPER RASH OINTMENT [Suspect]
     Indication: DERMATITIS DIAPER
     Dosage: TEXT:^NICKEL SIZE^ TWO TIMES
     Route: 061

REACTIONS (3)
  - APPLICATION SITE BURN [None]
  - APPLICATION SITE ERYTHEMA [None]
  - APPLICATION SITE REACTION [None]
